FAERS Safety Report 8866402 (Version 2)
Quarter: 2013Q1

REPORT INFORMATION
  Report Type: Spontaneous
  Country: US (occurrence: US)
  Receive Date: 20121025
  Receipt Date: 20130102
  Transmission Date: 20140127
  Serious: Yes (Death, Other)
  Sender: FDA-Public Use
  Company Number: US-ELI_LILLY_AND_COMPANY-US201210006338

PATIENT
  Sex: Female

DRUGS (4)
  1. GEMZAR [Suspect]
     Indication: UTERINE CANCER
     Dosage: UNK
     Dates: start: 20111104
  2. GEMZAR [Suspect]
     Dosage: UNK
     Dates: start: 20111118
  3. GEMZAR [Suspect]
     Dosage: UNK
     Dates: start: 20111201
  4. CARBOPLATIN [Concomitant]
     Indication: UTERINE CANCER
     Dosage: UNK
     Dates: end: 20111215

REACTIONS (1)
  - Malignant neoplasm progression [Fatal]
